FAERS Safety Report 5187805-7 (Version None)
Quarter: 2006Q4

REPORT INFORMATION
  Report Type: 
  Country: None (occurrence: None)
  Receive Date: 20061221
  Receipt Date: 20061016
  Transmission Date: 20070319
  Serious: Yes (Other)
  Sender: FDA-Public Use
  Company Number: FR-AVENTIS-200613701FR

PATIENT
  Age: 22 Year
  Sex: Male
  Weight: 80 kg

DRUGS (5)
  1. KETEK [Suspect]
     Indication: TONSILLITIS
     Route: 048
     Dates: start: 20060414, end: 20060419
  2. KETEK [Suspect]
     Indication: PHARYNGITIS
     Route: 048
     Dates: start: 20060414, end: 20060419
  3. DOLIPRANE [Suspect]
     Indication: PYREXIA
     Route: 048
     Dates: start: 20060414, end: 20060419
  4. TAVANIC [Suspect]
     Indication: TONSILLITIS
     Route: 048
     Dates: start: 20060420, end: 20060425
  5. ADVIL [Concomitant]
     Indication: PYREXIA
     Route: 048
     Dates: start: 20060414

REACTIONS (10)
  - ARTHRALGIA [None]
  - ASTHENIA [None]
  - CYTOLYTIC HEPATITIS [None]
  - HEPATOMEGALY [None]
  - HYPOTENSION [None]
  - LYMPHADENOPATHY [None]
  - MEDICATION ERROR [None]
  - NEUTROPENIA [None]
  - PYREXIA [None]
  - SPLENOMEGALY [None]
